FAERS Safety Report 20507598 (Version 6)
Quarter: 2022Q2

REPORT INFORMATION
  Report Type: Report from Study
  Country: US (occurrence: US)
  Receive Date: 20220223
  Receipt Date: 20220429
  Transmission Date: 20220721
  Serious: No
  Sender: FDA-Public Use
  Company Number: US-NOVARTISTESTPH-NVSC2022US039604

PATIENT
  Age: 75 Year
  Sex: Female

DRUGS (2)
  1. ENTRESTO [Suspect]
     Active Substance: SACUBITRIL\VALSARTAN
     Indication: Product used for unknown indication
     Dosage: UNK UNK, BID
     Route: 048
     Dates: start: 20220210, end: 20220218
  2. ELIQUIS [Suspect]
     Active Substance: APIXABAN
     Indication: Product used for unknown indication
     Dosage: UNK (IN MORNING)
     Route: 065

REACTIONS (17)
  - Abdominal pain upper [Recovered/Resolved]
  - Dyspnoea [Recovering/Resolving]
  - Asthenia [Unknown]
  - Dizziness [Unknown]
  - Hypotension [Unknown]
  - Gait disturbance [Unknown]
  - Abdominal discomfort [Unknown]
  - Vomiting [Unknown]
  - Visual impairment [Unknown]
  - Fatigue [Unknown]
  - Cough [Recovering/Resolving]
  - Diarrhoea [Recovered/Resolved]
  - Condition aggravated [Unknown]
  - Sleep apnoea syndrome [Recovered/Resolved]
  - Sleep apnoea syndrome [Recovered/Resolved]
  - Insomnia [Recovered/Resolved]
  - Sleep terror [Recovered/Resolved]

NARRATIVE: CASE EVENT DATE: 20220210
